FAERS Safety Report 19034865 (Version 2)
Quarter: 2021Q1

REPORT INFORMATION
  Report Type: Other
  Country: DE (occurrence: DE)
  Receive Date: 20210320
  Receipt Date: 20210326
  Transmission Date: 20210420
  Serious: Yes (Other)
  Sender: FDA-Public Use
  Company Number: DE-MACLEODS PHARMACEUTICALS US LTD-MAC2021030492

PATIENT

DRUGS (1)
  1. TAMSULOSIN [Suspect]
     Active Substance: TAMSULOSIN
     Indication: MICTURITION URGENCY
     Dosage: 1 DOSAGE FORM, QD, I HAVE BEEN TAKING THIS REMEDY FOR 3 WEEKS
     Route: 065
     Dates: start: 20210223

REACTIONS (4)
  - Hypoventilation [Unknown]
  - Nasal dryness [Unknown]
  - Nasal congestion [Not Recovered/Not Resolved]
  - Dry mouth [Not Recovered/Not Resolved]

NARRATIVE: CASE EVENT DATE: 20210224
